FAERS Safety Report 20961465 (Version 1)
Quarter: 2022Q2

REPORT INFORMATION
  Report Type: Report from Study
  Country: CA (occurrence: CA)
  Receive Date: 20220615
  Receipt Date: 20220615
  Transmission Date: 20220720
  Serious: Yes (Other)
  Sender: FDA-Public Use
  Company Number: CA-Accord-265792

PATIENT
  Age: 70 Year
  Sex: Female

DRUGS (1)
  1. METHOTREXATE [Suspect]
     Active Substance: METHOTREXATE
     Indication: Corneal epithelial downgrowth
     Dosage: INTRAVITREAL 400 UG/0.05 ML MTX INJECTIONS (TOTAL 10 INJECTIONS)

REACTIONS (2)
  - Off label use [Unknown]
  - Retinal pigment epitheliopathy [Unknown]
